FAERS Safety Report 25610347 (Version 2)
Quarter: 2025Q3

REPORT INFORMATION
  Report Type: Spontaneous
  Country: GB (occurrence: GB)
  Receive Date: 20250728
  Receipt Date: 20250811
  Transmission Date: 20251020
  Serious: Yes (Hospitalization, Other)
  Sender: AVERITAS
  Company Number: GB-GRUNENTHAL-2025-110724

PATIENT
  Age: 52 Year
  Sex: Male

DRUGS (5)
  1. QUTENZA [Suspect]
     Active Substance: CAPSAICIN
     Indication: Diabetic neuropathy
     Route: 003
     Dates: start: 20250611, end: 20250611
  2. QUTENZA [Suspect]
     Active Substance: CAPSAICIN
     Route: 003
     Dates: start: 20241018, end: 20241018
  3. BUPRENORPHINE [Concomitant]
     Active Substance: BUPRENORPHINE
     Indication: Diabetic neuropathy
     Route: 065
  4. PREGABALIN [Concomitant]
     Active Substance: PREGABALIN
     Indication: Diabetic neuropathy
     Dosage: 100 MILLIGRAM, 2/DAY
     Route: 065
  5. MORPHINE SULFATE [Concomitant]
     Active Substance: MORPHINE SULFATE
     Dosage: 10 MILLIGRAM, 4/DAY
     Route: 065

REACTIONS (2)
  - Application site vesicles [Unknown]
  - Foot amputation [Unknown]

NARRATIVE: CASE EVENT DATE: 20250601
